FAERS Safety Report 13214332 (Version 1)
Quarter: 2017Q1

REPORT INFORMATION
  Report Type: Spontaneous
  Country: US (occurrence: US)
  Receive Date: 20170209
  Receipt Date: 20170209
  Transmission Date: 20170428
  Serious: No
  Sender: FDA-Public Use
  Company Number: US-ALLERGAN-1669362US

PATIENT
  Sex: Female

DRUGS (4)
  1. BOTOX [Suspect]
     Active Substance: ONABOTULINUMTOXINA
     Indication: MIGRAINE
     Dosage: UNK UNK, SINGLE
     Route: 030
     Dates: start: 20160804, end: 20160804
  2. PHENOBARB [Concomitant]
     Active Substance: PHENOBARBITAL SODIUM
     Indication: SEIZURE
     Dosage: 130 MG, QD
  3. DIAZEPAM. [Concomitant]
     Active Substance: DIAZEPAM
     Indication: SEIZURE
     Dosage: 10 MG, QD
  4. MARIJUANA [Concomitant]
     Active Substance: CANNABIS SATIVA SUBSP. INDICA TOP
     Indication: MIGRAINE
     Dosage: UNK

REACTIONS (4)
  - Injection site bruising [Unknown]
  - Musculoskeletal pain [Unknown]
  - Rash erythematous [Unknown]
  - Injection site pruritus [Not Recovered/Not Resolved]
